FAERS Safety Report 11916698 (Version 2)
Quarter: 2016Q1

REPORT INFORMATION
  Report Type: Spontaneous
  Country: US (occurrence: US)
  Receive Date: 20160114
  Receipt Date: 20160203
  Transmission Date: 20160526
  Serious: No
  Sender: FDA-Public Use
  Company Number: US-GLAXOSMITHKLINE-US2016003450

PATIENT
  Sex: Female

DRUGS (1)
  1. VENTOLIN [Suspect]
     Active Substance: ALBUTEROL SULFATE
     Indication: PNEUMONIA
     Dosage: UNK
     Route: 055
     Dates: start: 20160108, end: 20160109

REACTIONS (6)
  - Off label use [Unknown]
  - Hallucination [Recovered/Resolved]
  - Hypersensitivity [Unknown]
  - Malaise [Unknown]
  - Feeling abnormal [Unknown]
  - Drug ineffective [Unknown]
